FAERS Safety Report 17890438 (Version 3)
Quarter: 2020Q3

REPORT INFORMATION
  Report Type: Report from Study
  Country: None (occurrence: US)
  Receive Date: 20200612
  Receipt Date: 20200731
  Transmission Date: 20201103
  Serious: Yes (Hospitalization, Other)
  Sender: FDA-Public Use
  Company Number: US-ABBVIE-20K-163-3390730-00

PATIENT
  Age: 53 Year
  Sex: Female
  Weight: 49.94 kg

DRUGS (8)
  1. HUMIRA [Suspect]
     Active Substance: ADALIMUMAB
     Route: 058
     Dates: start: 202005
  2. IMITREX [Concomitant]
     Active Substance: SUMATRIPTAN SUCCINATE
     Indication: MIGRAINE
  3. HUMIRA [Suspect]
     Active Substance: ADALIMUMAB
     Indication: UVEITIS
     Route: 058
     Dates: start: 201904, end: 20190726
  4. CLARINEX [Concomitant]
     Active Substance: DESLORATADINE
     Indication: HYPERSENSITIVITY
  5. TOPAMAX [Concomitant]
     Active Substance: TOPIRAMATE
     Indication: MIGRAINE
  6. NORTRIPTYLINE [Concomitant]
     Active Substance: NORTRIPTYLINE
     Indication: MIGRAINE
  7. SINGULAIR [Concomitant]
     Active Substance: MONTELUKAST SODIUM
     Indication: HYPERSENSITIVITY
  8. HUMIRA [Suspect]
     Active Substance: ADALIMUMAB
     Route: 058
     Dates: start: 201910, end: 202004

REACTIONS (24)
  - Injection site pain [Not Recovered/Not Resolved]
  - Wrong technique in product usage process [Unknown]
  - Eye injury [Not Recovered/Not Resolved]
  - Inflammation [Unknown]
  - Complication associated with device [Recovered/Resolved]
  - Anxiety [Recovered/Resolved]
  - Nervousness [Recovered/Resolved]
  - Loose tooth [Recovering/Resolving]
  - Clostridium difficile infection [Recovered/Resolved]
  - Loose tooth [Recovered/Resolved]
  - Cataract [Not Recovered/Not Resolved]
  - Visual impairment [Unknown]
  - Bruxism [Not Recovered/Not Resolved]
  - Gastric disorder [Unknown]
  - Blood iron decreased [Unknown]
  - Nausea [Recovering/Resolving]
  - Abdominal pain upper [Recovered/Resolved]
  - Nephrolithiasis [Recovered/Resolved]
  - Migraine [Not Recovered/Not Resolved]
  - Incorrect dose administered [Unknown]
  - Kidney infection [Recovered/Resolved]
  - Sepsis [Recovered/Resolved]
  - Intentional product misuse [Unknown]
  - Malaise [Recovered/Resolved]

NARRATIVE: CASE EVENT DATE: 201904
